FAERS Safety Report 17262073 (Version 1)
Quarter: 2020Q1

REPORT INFORMATION
  Report Type: Spontaneous
  Country: DE (occurrence: DE)
  Receive Date: 20200113
  Receipt Date: 20200113
  Transmission Date: 20200409
  Serious: Yes (Other)
  Sender: FDA-Public Use
  Company Number: DE-ROCHE-2463485

PATIENT
  Age: 49 Year
  Sex: Male
  Weight: 82 kg

DRUGS (9)
  1. DOXORUBICIN [Suspect]
     Active Substance: DOXORUBICIN
     Indication: DIFFUSE LARGE B-CELL LYMPHOMA
     Dosage: 1ST LINE THERAPY, ACCORDING TO R-CHOP REGIMEN, 6 CYCLES
     Route: 065
     Dates: start: 201812, end: 201904
  2. CYCLOPHOSPHAMIDE. [Suspect]
     Active Substance: CYCLOPHOSPHAMIDE
     Indication: DIFFUSE LARGE B-CELL LYMPHOMA
     Dosage: 1ST LINE THERAPY, ACCORDING TO R-CHOP REGIMEN, 6 CYCLES
     Route: 065
     Dates: start: 201812, end: 201904
  3. CISPLATIN. [Suspect]
     Active Substance: CISPLATIN
     Indication: DIFFUSE LARGE B-CELL LYMPHOMA
     Dosage: 2ND LINE THERAPY, ACCORDING TO R-DHAP REGIMEN, 4 CYCLES
     Route: 065
     Dates: start: 201907, end: 201909
  4. DEXAMETHASONE. [Suspect]
     Active Substance: DEXAMETHASONE
     Indication: DIFFUSE LARGE B-CELL LYMPHOMA
     Dosage: 2ND LINE THERAPY, ACCORDING TO R-DHAP REGIMEN, 4 CYCLES
     Route: 065
     Dates: start: 201907, end: 201909
  5. CYTARABINE. [Suspect]
     Active Substance: CYTARABINE
     Indication: DIFFUSE LARGE B-CELL LYMPHOMA
     Dosage: 2ND LINE THERAPY, ACCORDING TO R-DHAP REGIMEN, 4 CYCLES
     Route: 065
     Dates: start: 201907, end: 201909
  6. MABTHERA [Suspect]
     Active Substance: RITUXIMAB
     Dosage: 2ND LINE THERAPY, ACCORDING TO R-DHAP REGIMEN, 4 CYCLES
     Route: 065
     Dates: start: 201907, end: 201909
  7. MABTHERA [Suspect]
     Active Substance: RITUXIMAB
     Indication: DIFFUSE LARGE B-CELL LYMPHOMA
     Dosage: 1ST LINE THERAPY, ACCORDING TO R-CHOP REGIMEN, 6 CYCLES
     Route: 065
     Dates: start: 201812, end: 201904
  8. VINCRISTINE [Suspect]
     Active Substance: VINCRISTINE
     Indication: DIFFUSE LARGE B-CELL LYMPHOMA
     Dosage: 1ST LINE THERAPY, ACCORDING TO R-CHOP REGIMEN, 6 CYCLES
     Route: 065
     Dates: start: 201812, end: 201904
  9. PREDNISOLONE. [Suspect]
     Active Substance: PREDNISOLONE
     Indication: DIFFUSE LARGE B-CELL LYMPHOMA
     Dosage: 1ST LINE THERAPY, ACCORDING TO R-CHOP REGIMEN, 6 CYCLES
     Route: 065
     Dates: start: 201812, end: 201904

REACTIONS (1)
  - Haematotoxicity [Unknown]

NARRATIVE: CASE EVENT DATE: 20191009
